FAERS Safety Report 5089232-X (Version None)
Quarter: 2006Q3

REPORT INFORMATION
  Report Type: 
  Country: None (occurrence: None)
  Receive Date: 20060822
  Receipt Date: 20060808
  Transmission Date: 20061208
  Serious: Yes (Other)
  Sender: FDA-Public Use
  Company Number: 2970

PATIENT
  Age: 25 Year
  Sex: Female

DRUGS (2)
  1. AMNESTEEM [Suspect]
     Dosage: 20 MG, TWICE DAY, ORAL
     Route: 048
     Dates: start: 20040720
  2. BIRTH CONTROL PILLS [Concomitant]

REACTIONS (6)
  - DRUG EXPOSURE BEFORE PREGNANCY [None]
  - DRUG EXPOSURE DURING PREGNANCY [None]
  - PREGNANCY ON ORAL CONTRACEPTIVE [None]
  - PREGNANCY WITH CONTRACEPTIVE DEVICE [None]
  - PREGNANCY WITH INJECTABLE CONTRACEPTIVE [None]
  - TREATMENT NONCOMPLIANCE [None]
